FAERS Safety Report 16047082 (Version 1)
Quarter: 2019Q1

REPORT INFORMATION
  Report Type: Report from Study
  Country: BE (occurrence: BE)
  Receive Date: 20190307
  Receipt Date: 20190307
  Transmission Date: 20190418
  Serious: Yes (Hospitalization, Other)
  Sender: FDA-Public Use
  Company Number: PHHY2019BE049598

PATIENT
  Age: 10 Year
  Sex: Female
  Weight: 33.3 kg

DRUGS (32)
  1. JAKAVI [Suspect]
     Active Substance: RUXOLITINIB
     Dosage: 10 MG, UNK
     Route: 065
     Dates: start: 20180125
  2. TACROLIMUS. [Suspect]
     Active Substance: TACROLIMUS
     Indication: PRODUCT USED FOR UNKNOWN INDICATION
     Route: 065
  3. TARGOCID [Suspect]
     Active Substance: TEICOPLANIN
     Indication: DEVICE RELATED INFECTION
     Dosage: UNK
     Route: 065
     Dates: start: 20180809, end: 20180809
  4. CALCIUM CARBONATE. [Concomitant]
     Active Substance: CALCIUM CARBONATE
     Indication: PRODUCT USED FOR UNKNOWN INDICATION
     Dosage: 500 MG, BID
     Route: 065
  5. DAFALGAN [Concomitant]
     Active Substance: ACETAMINOPHEN
     Indication: PRODUCT USED FOR UNKNOWN INDICATION
     Dosage: UNK UNK, PRN
     Route: 065
  6. MEDROL [Concomitant]
     Active Substance: METHYLPREDNISOLONE
     Indication: GRAFT VERSUS HOST DISEASE
     Dosage: UNK
     Route: 065
     Dates: start: 20180420
  7. PEPTAMEN [Concomitant]
     Indication: PRODUCT USED FOR UNKNOWN INDICATION
     Dosage: 1500 ML, QD (REALIZED 1000 ML)
     Route: 065
     Dates: start: 201801
  8. TARGOCID [Suspect]
     Active Substance: TEICOPLANIN
     Indication: STAPHYLOCOCCAL BACTERAEMIA
  9. LIPIKAR [Suspect]
     Active Substance: COSMETICS
     Indication: PRODUCT USED FOR UNKNOWN INDICATION
     Dosage: UNK
     Route: 065
     Dates: start: 2018
  10. PROGRAFT [Suspect]
     Active Substance: TACROLIMUS
     Indication: GRAFT VERSUS HOST DISEASE
     Dosage: 5 ML, QD (5 ML IN THE MORNING AND 5 ML IN THE EVENING)
     Route: 065
  11. ORAMORPH [Concomitant]
     Active Substance: MORPHINE SULFATE
     Indication: PRODUCT USED FOR UNKNOWN INDICATION
     Dosage: 8 DF, PRN (QD OR BID)
     Route: 065
  12. KAYEXALATE CALCIUM [Concomitant]
     Indication: PRODUCT USED FOR UNKNOWN INDICATION
     Dosage: 10 ML, QD
     Route: 065
     Dates: start: 20180813
  13. CLEXANE [Suspect]
     Active Substance: ENOXAPARIN SODIUM
     Indication: DEEP VEIN THROMBOSIS
     Dosage: 30 MG, BID
     Route: 065
     Dates: start: 20180810
  14. PROGRAFT [Suspect]
     Active Substance: TACROLIMUS
     Dosage: 6 ML, BID (6ML IN THE MORNING AND 6 ML IN THE EVENING)
     Route: 065
     Dates: start: 20180903
  15. PAMIDRONATE [Concomitant]
     Active Substance: PAMIDRONATE DISODIUM
     Indication: PRODUCT USED FOR UNKNOWN INDICATION
     Dosage: 45 MG, (1 MONTH)
     Route: 065
  16. CLEXANE [Suspect]
     Active Substance: ENOXAPARIN SODIUM
     Dosage: 50 MG, QD
     Route: 065
     Dates: start: 2018
  17. PROGRAFT [Suspect]
     Active Substance: TACROLIMUS
     Dosage: TARGET DOSE OF 5-8
     Route: 065
     Dates: start: 20180416
  18. BACTRIM [Concomitant]
     Active Substance: SULFAMETHOXAZOLE\TRIMETHOPRIM
     Indication: PRODUCT USED FOR UNKNOWN INDICATION
     Dosage: 10 ML, QW3
     Route: 065
  19. OMEPRAZOLE. [Concomitant]
     Active Substance: OMEPRAZOLE
     Indication: PRODUCT USED FOR UNKNOWN INDICATION
     Dosage: 20 MG, QD
     Route: 065
  20. PREVENAR [Concomitant]
     Active Substance: PNEUMOCOCCAL 7-VALENT CONJUGATE VACCINE (DIPHTHERIA CRM197 PROTEIN)
     Indication: PRODUCT USED FOR UNKNOWN INDICATION
     Dosage: UNK
     Route: 065
     Dates: start: 201809
  21. DIFLUCAN [Concomitant]
     Active Substance: FLUCONAZOLE
     Indication: PRODUCT USED FOR UNKNOWN INDICATION
     Dosage: 260 MG, QD (6.5 ML)
     Route: 065
  22. D-CURE [Concomitant]
     Active Substance: CHOLECALCIFEROL
     Indication: PRODUCT USED FOR UNKNOWN INDICATION
     Dosage: 13 DF, QD
     Route: 065
  23. FENISTIL [Concomitant]
     Active Substance: DIMETHINDENE
     Indication: PRODUCT USED FOR UNKNOWN INDICATION
     Dosage: 30 DF, PRN
     Route: 065
  24. RAPAMUNE [Concomitant]
     Active Substance: SIROLIMUS
     Indication: GRAFT VERSUS HOST DISEASE
     Route: 065
  25. JAKAVI [Suspect]
     Active Substance: RUXOLITINIB
     Indication: GRAFT VERSUS HOST DISEASE
     Dosage: 15 MG, QD
     Route: 065
     Dates: start: 20170928
  26. TARGOCID [Suspect]
     Active Substance: TEICOPLANIN
     Indication: STAPHYLOCOCCAL INFECTION
  27. CLEXANE [Suspect]
     Active Substance: ENOXAPARIN SODIUM
     Dosage: 20 MG, BID
     Route: 065
     Dates: start: 20180813
  28. BECLOMETHASONE [Concomitant]
     Active Substance: BECLOMETHASONE
     Indication: PRODUCT USED FOR UNKNOWN INDICATION
     Dosage: 1 MG, BID
     Route: 048
  29. ZOVIRAX [Concomitant]
     Active Substance: ACYCLOVIR
     Indication: PRODUCT USED FOR UNKNOWN INDICATION
     Dosage: 15 ML, QD
     Route: 065
  30. CORTICOSTEROIDS [Concomitant]
     Active Substance: CORTICOSTEROID NOS
     Indication: GRAFT VERSUS HOST DISEASE
     Dosage: UNK
     Route: 048
     Dates: end: 20180105
  31. JAKAVI [Suspect]
     Active Substance: RUXOLITINIB
     Dosage: 15 MG, UNK
     Route: 065
     Dates: start: 20180416
  32. VITA POS [Concomitant]
     Active Substance: VITAMIN A PALMITATE
     Indication: PRODUCT USED FOR UNKNOWN INDICATION
     Dosage: UNK UNK, QD
     Route: 065

REACTIONS (23)
  - Hyperkalaemia [Unknown]
  - Xerosis [Recovering/Resolving]
  - Varicella [Unknown]
  - Dehydration [Unknown]
  - Staphylococcal infection [Unknown]
  - Injection site haemorrhage [Unknown]
  - Device related infection [Unknown]
  - Acute kidney injury [Unknown]
  - Burning sensation [Unknown]
  - Hypertension [Unknown]
  - Pyrexia [Unknown]
  - Diarrhoea [Unknown]
  - Catheter site thrombosis [Unknown]
  - Pruritus [Recovering/Resolving]
  - Thrombophlebitis [Recovered/Resolved]
  - Clostridium difficile colitis [Unknown]
  - Rash erythematous [Recovering/Resolving]
  - Skin exfoliation [Recovering/Resolving]
  - Mucous stools [Unknown]
  - Staphylococcal bacteraemia [Unknown]
  - Osteonecrosis [Unknown]
  - Decreased appetite [Unknown]
  - Fatigue [Unknown]

NARRATIVE: CASE EVENT DATE: 20171109
